FAERS Safety Report 6524013-9 (Version None)
Quarter: 2009Q4

REPORT INFORMATION
  Report Type: 
  Country: None (occurrence: None)
  Receive Date: 20091231
  Receipt Date: 20091220
  Transmission Date: 20100525
  Serious: Yes (Other)
  Sender: FDA-Public Use
  Company Number: AU-SANOFI-AVENTIS-2009SA009890

PATIENT
  Sex: Male

DRUGS (2)
  1. STILNOX [Suspect]
     Indication: DRUG USE FOR UNKNOWN INDICATION
     Route: 048
     Dates: start: 20071221
  2. ALCOHOL [Suspect]
     Indication: ALCOHOL USE
     Route: 048
     Dates: start: 20071221

REACTIONS (2)
  - AMNESIA [None]
  - PHYSICAL ASSAULT [None]
